FAERS Safety Report 6579969-5 (Version None)
Quarter: 2010Q1

REPORT INFORMATION
  Report Type: 
  Country: None (occurrence: None)
  Receive Date: 20100203
  Receipt Date: 20100127
  Transmission Date: 20100710
  Serious: Yes (Hospitalization, Other)
  Sender: FDA-Public Use
  Company Number: 2010SP005965

PATIENT
  Age: 73 Year
  Sex: Male

DRUGS (1)
  1. ONCOTICE [Suspect]
     Indication: DRUG USE FOR UNKNOWN INDICATION
     Dates: start: 20091223, end: 20091230

REACTIONS (9)
  - BLOOD BILIRUBIN INCREASED [None]
  - BLOOD CREATININE INCREASED [None]
  - DYSURIA [None]
  - HAEMORRHAGE [None]
  - HEPATIC ENZYME INCREASED [None]
  - INFECTION [None]
  - PAIN [None]
  - POLLAKIURIA [None]
  - VASCULITIS [None]
